FAERS Safety Report 5711276-2 (Version None)
Quarter: 2008Q2

REPORT INFORMATION
  Report Type: 
  Country: None (occurrence: None)
  Receive Date: 20080418
  Receipt Date: 20080418
  Transmission Date: 20081010
  Serious: Yes (Life-Threatening, Hospitalization)
  Sender: FDA-Public Use
  Company Number: None

PATIENT
  Age: 69 Year
  Sex: Male
  Weight: 52.6173 kg

DRUGS (4)
  1. TEKTURNA [Suspect]
     Indication: HYPERTENSION
  2. LISINOPRIL [Suspect]
     Indication: HYPERTENSION
  3. SPIRONOLACTONE [Concomitant]
  4. BUMETANIDE [Concomitant]

REACTIONS (5)
  - ANGIOEDEMA [None]
  - DROOLING [None]
  - DYSARTHRIA [None]
  - DYSPNOEA [None]
  - SWOLLEN TONGUE [None]
